FAERS Safety Report 8965516 (Version 1)
Quarter: 2012Q4

REPORT INFORMATION
  Report Type: Spontaneous
  Country: US (occurrence: None)
  Receive Date: 20121212
  Receipt Date: 20121212
  Transmission Date: 20130627
  Serious: Yes (Other)
  Sender: FDA-Public Use
  Company Number: None

PATIENT
  Age: 7 Year
  Sex: Male
  Weight: 27.22 kg

DRUGS (1)
  1. TAMIFLU [Suspect]
     Indication: FLU SYMPTOMS
     Route: 048
     Dates: start: 20121203, end: 20121206

REACTIONS (4)
  - Feeling abnormal [None]
  - Dizziness [None]
  - Frustration [None]
  - Abnormal behaviour [None]
